FAERS Safety Report 9007603 (Version 3)
Quarter: 2013Q2

REPORT INFORMATION
  Report Type: Spontaneous
  Country: US (occurrence: US)
  Receive Date: 20130111
  Receipt Date: 20130529
  Transmission Date: 20140414
  Serious: Yes (Other)
  Sender: FDA-Public Use
  Company Number: US-BIOGENIDEC-2013BI001944

PATIENT
  Age: 33 Year
  Sex: Female

DRUGS (5)
  1. AVONEX [Suspect]
     Indication: MULTIPLE SCLEROSIS
     Route: 030
     Dates: start: 20090502, end: 201105
  2. AVONEX [Suspect]
     Indication: MULTIPLE SCLEROSIS
     Route: 030
     Dates: start: 201105
  3. COPAXONE [Concomitant]
     Indication: MULTIPLE SCLEROSIS
     Route: 058
     Dates: start: 199710, end: 2009
  4. PAXIL [Concomitant]
  5. CONTRACEPTIVE MEDICATION [Concomitant]
     Route: 048

REACTIONS (10)
  - Febrile convulsion [Recovered/Resolved]
  - Pneumonia [Not Recovered/Not Resolved]
  - Wheezing [Not Recovered/Not Resolved]
  - Memory impairment [Not Recovered/Not Resolved]
  - Vision blurred [Unknown]
  - Eye movement disorder [Unknown]
  - Nuclear magnetic resonance imaging abnormal [Unknown]
  - Pyrexia [Recovered/Resolved]
  - Nausea [Unknown]
  - Headache [Recovered/Resolved]
